FAERS Safety Report 8800989 (Version 1)
Quarter: 2012Q4

REPORT INFORMATION
  Report Type: 
  Country: US (occurrence: US)
  Receive Date: 20120921
  Receipt Date: 20120921
  Transmission Date: 20130627
  Serious: Yes (Congenital Anomaly)
  Sender: FDA-Public Use
  Company Number: US-GLAXOSMITHKLINE-A0681581A

PATIENT
  Age: 0 Year
  Sex: Male
  Weight: 3.6 kg

DRUGS (2)
  1. PAXIL CR [Suspect]
     Indication: DEPRESSION
     Dosage: 12.5MG Per day
     Route: 064
     Dates: start: 200306, end: 200409
  2. PRENATAL VITAMINS [Concomitant]
     Route: 064

REACTIONS (5)
  - Pulmonary artery stenosis congenital [Unknown]
  - Cardiac murmur [Unknown]
  - Multiple congenital abnormalities [Unknown]
  - Atrial septal defect [Unknown]
  - Foetal exposure during pregnancy [Unknown]
